FAERS Safety Report 20319708 (Version 1)
Quarter: 2022Q1

REPORT INFORMATION
  Report Type: Spontaneous
  Country: ES (occurrence: ES)
  Receive Date: 20220110
  Receipt Date: 20220110
  Transmission Date: 20220423
  Serious: Yes (Hospitalization)
  Sender: FDA-Public Use
  Company Number: ES-SA-2020SA011886

PATIENT
  Age: 73 Year
  Sex: Male
  Weight: 81 kg

DRUGS (10)
  1. IRINOTECAN [Suspect]
     Active Substance: IRINOTECAN
     Indication: Colorectal cancer
     Dosage: 360 MILLIGRAM, EVERY TWO WEEKS (QOW)
     Route: 042
     Dates: start: 20191113, end: 20191113
  2. IRINOTECAN [Suspect]
     Active Substance: IRINOTECAN
     Dosage: 360 MILLIGRAM, EVERY TWO WEEKS (QOW)
     Route: 042
     Dates: start: 20200102
  3. AFLIBERCEPT [Suspect]
     Active Substance: AFLIBERCEPT
     Indication: Colorectal cancer
     Dosage: 356 MG, EVERY TWO WEEKS (QOW)
     Route: 042
     Dates: start: 20191113, end: 20191113
  4. AFLIBERCEPT [Suspect]
     Active Substance: AFLIBERCEPT
     Dosage: 356 MG, EVERY TWO WEEKS (QOW)
     Route: 042
     Dates: start: 20200102
  5. LEUCOVORIN CALCIUM [Suspect]
     Active Substance: LEUCOVORIN CALCIUM
     Indication: Colorectal cancer
     Dosage: 800 MILLIGRAM, EVERY TWO WEEKS (QOW)
     Route: 065
     Dates: start: 20191113, end: 20191113
  6. LEUCOVORIN CALCIUM [Suspect]
     Active Substance: LEUCOVORIN CALCIUM
     Dosage: 800 MILLIGRAM, EVERY TWO WEEKS (QOW)
     Route: 065
     Dates: start: 20200102
  7. FLUOROURACIL [Suspect]
     Active Substance: FLUOROURACIL
     Indication: Colorectal cancer
     Dosage: 800 MILLIGRAM, EVERY TWO WEEKS (QOW)
     Route: 040
     Dates: start: 20191113, end: 20191113
  8. FLUOROURACIL [Suspect]
     Active Substance: FLUOROURACIL
     Dosage: 4800 MILLIGRAM, EVERY TWO WEEKS (QOW)
     Route: 042
     Dates: start: 20191113, end: 20191113
  9. FLUOROURACIL [Suspect]
     Active Substance: FLUOROURACIL
     Dosage: 800 MILLIGRAM, EVERY TWO WEEKS (QOW)
     Route: 040
     Dates: start: 20200102, end: 20200102
  10. FLUOROURACIL [Suspect]
     Active Substance: FLUOROURACIL
     Dosage: 4800 MILLIGRAM, EVERY TWO WEEKS (QOW)
     Route: 042
     Dates: start: 20200102

REACTIONS (1)
  - Oesophagitis [Recovered/Resolved]

NARRATIVE: CASE EVENT DATE: 20200113
